FAERS Safety Report 23280291 (Version 1)
Quarter: 2023Q4

REPORT INFORMATION
  Report Type: Spontaneous
  Country: ES (occurrence: ES)
  Receive Date: 20231210
  Receipt Date: 20231210
  Transmission Date: 20240109
  Serious: Yes (Other)
  Sender: FDA-Public Use
  Company Number: ES-BAYER-2023A173945

PATIENT
  Age: 80 Year
  Sex: Female

DRUGS (1)
  1. XARELTO [Suspect]
     Active Substance: RIVAROXABAN
     Indication: Product used for unknown indication
     Dosage: 15 MG
     Route: 048

REACTIONS (6)
  - Blood disorder [Unknown]
  - Nasopharyngitis [Unknown]
  - Skin discolouration [Unknown]
  - Nervousness [Unknown]
  - Pain in extremity [Unknown]
  - Fatigue [Unknown]
